FAERS Safety Report 13267908 (Version 1)
Quarter: 2017Q1

REPORT INFORMATION
  Report Type: Spontaneous
  Country: US (occurrence: US)
  Receive Date: 20170224
  Receipt Date: 20170224
  Transmission Date: 20170428
  Serious: Yes (Life-Threatening)
  Sender: FDA-Public Use
  Company Number: PHEH2017US004581

PATIENT
  Sex: Female

DRUGS (1)
  1. RECLAST [Suspect]
     Active Substance: ZOLEDRONIC ACID
     Indication: OSTEOPOROSIS
     Dosage: UNK
     Route: 041
     Dates: start: 20161227

REACTIONS (8)
  - Musculoskeletal pain [Recovering/Resolving]
  - Pain in extremity [Unknown]
  - Feeling abnormal [Unknown]
  - Movement disorder [Unknown]
  - Neck pain [Unknown]
  - Muscle spasms [Unknown]
  - Quality of life decreased [Unknown]
  - Arthralgia [Unknown]
